FAERS Safety Report 20375364 (Version 24)
Quarter: 2022Q4

REPORT INFORMATION
  Report Type: Report from Study
  Country: CA (occurrence: CA)
  Receive Date: 20220125
  Receipt Date: 20221223
  Transmission Date: 20230113
  Serious: Yes (Hospitalization, Other)
  Sender: FDA-Public Use
  Company Number: CA-GILEAD-2021-0563631

PATIENT
  Age: 72 Year
  Sex: Female
  Weight: 66 kg

DRUGS (19)
  1. SACITUZUMAB GOVITECAN-HZIY [Suspect]
     Active Substance: SACITUZUMAB GOVITECAN-HZIY
     Indication: Triple negative breast cancer
     Dosage: 500 MG
     Route: 042
     Dates: start: 20211228
  2. SACITUZUMAB GOVITECAN-HZIY [Suspect]
     Active Substance: SACITUZUMAB GOVITECAN-HZIY
     Dosage: 500 MG
     Route: 042
     Dates: start: 20220119
  3. SACITUZUMAB GOVITECAN-HZIY [Suspect]
     Active Substance: SACITUZUMAB GOVITECAN-HZIY
     Dosage: UNK C2D1, C2D15
     Route: 042
     Dates: start: 20220126, end: 20220209
  4. SACITUZUMAB GOVITECAN-HZIY [Suspect]
     Active Substance: SACITUZUMAB GOVITECAN-HZIY
     Dosage: DAY 1 AND DAY 8
     Route: 042
     Dates: start: 20220302, end: 20220309
  5. SACITUZUMAB GOVITECAN-HZIY [Suspect]
     Active Substance: SACITUZUMAB GOVITECAN-HZIY
     Dosage: 500 UNK  DAY 1
     Route: 042
     Dates: start: 20220330
  6. SACITUZUMAB GOVITECAN-HZIY [Suspect]
     Active Substance: SACITUZUMAB GOVITECAN-HZIY
     Dosage: 500 MG
     Route: 042
     Dates: start: 20220427
  7. SACITUZUMAB GOVITECAN-HZIY [Suspect]
     Active Substance: SACITUZUMAB GOVITECAN-HZIY
     Dosage: 570 MG
     Route: 042
  8. SACITUZUMAB GOVITECAN-HZIY [Suspect]
     Active Substance: SACITUZUMAB GOVITECAN-HZIY
     Dosage: 500 MG
     Route: 042
     Dates: start: 20220827, end: 20220827
  9. SACITUZUMAB GOVITECAN-HZIY [Suspect]
     Active Substance: SACITUZUMAB GOVITECAN-HZIY
     Dosage: DAY 1 AD DAY 8
     Route: 042
     Dates: start: 20220926, end: 20221004
  10. SACITUZUMAB GOVITECAN-HZIY [Suspect]
     Active Substance: SACITUZUMAB GOVITECAN-HZIY
     Dosage: DAY 1 AD DAY 8
     Route: 042
     Dates: start: 20220926, end: 20221004
  11. SACITUZUMAB GOVITECAN-HZIY [Suspect]
     Active Substance: SACITUZUMAB GOVITECAN-HZIY
     Dosage: CYCLE 1
     Route: 042
     Dates: start: 20221018
  12. AKYNZEO (NETUPITANT\PALONOSETRON) [Concomitant]
     Active Substance: NETUPITANT\PALONOSETRON
     Dosage: 1 TABLET (PRE-MEDICATION PRIOR TO TRODELVY)
     Route: 048
  13. DEXAMETHASONE [Concomitant]
     Active Substance: DEXAMETHASONE
     Dosage: 4 MG (PRE-MED BEFORE THE TRODELVY TREATMENT)
     Route: 048
  14. DEXAMETHASONE [Concomitant]
     Active Substance: DEXAMETHASONE
     Dosage: 8 MG (PRE-MED BEFORE THE TRODELVY TREATMENT)
     Route: 048
  15. CETIRIZINE HYDROCHLORIDE [Concomitant]
     Active Substance: CETIRIZINE HYDROCHLORIDE
     Dosage: 20 MG (PRE-MED BEFORE THE TRODELVY TREATMENT)
     Route: 048
  16. CETIRIZINE HYDROCHLORIDE [Concomitant]
     Active Substance: CETIRIZINE HYDROCHLORIDE
     Dosage: 40 MG (PRE-MEDICATION PRIOR TO TRODELVY)
     Route: 048
  17. FAMOTIDINE [Concomitant]
     Active Substance: FAMOTIDINE
     Dosage: 40 MG (PRE-MED BEFORE THE TRODELVY TREATMENT)
     Route: 048
  18. TAXOL [Concomitant]
     Active Substance: PACLITAXEL
  19. NETUPITANT [Concomitant]
     Active Substance: NETUPITANT

REACTIONS (30)
  - Pulmonary thrombosis [Unknown]
  - Deep vein thrombosis [Unknown]
  - White blood cell count decreased [Unknown]
  - Neutropenia [Unknown]
  - Lung disorder [Not Recovered/Not Resolved]
  - Fluid retention [Unknown]
  - Lower respiratory tract infection [Unknown]
  - Hip surgery [Not Recovered/Not Resolved]
  - Arthropathy [Not Recovered/Not Resolved]
  - Hypotension [Unknown]
  - Blood test abnormal [Unknown]
  - Complication associated with device [Unknown]
  - Weight bearing difficulty [Unknown]
  - Complication associated with device [Unknown]
  - Weight increased [Not Recovered/Not Resolved]
  - Weight decreased [Unknown]
  - Infection [Unknown]
  - Platelet count decreased [Not Recovered/Not Resolved]
  - Post procedural complication [Unknown]
  - Weight fluctuation [Not Recovered/Not Resolved]
  - Incorrect dose administered [Unknown]
  - Heart rate increased [Unknown]
  - Hypertension [Unknown]
  - Inappropriate schedule of product administration [Unknown]
  - Fatigue [Recovering/Resolving]
  - Asthenia [Recovering/Resolving]
  - Diarrhoea [Unknown]
  - Fatigue [Unknown]
  - Inappropriate schedule of product administration [Unknown]
  - Off label use [Unknown]

NARRATIVE: CASE EVENT DATE: 20211228
